FAERS Safety Report 4950158-0 (Version None)
Quarter: 2006Q1

REPORT INFORMATION
  Report Type: 
  Country: None (occurrence: None)
  Receive Date: 20060316
  Receipt Date: 20060306
  Transmission Date: 20060701
  Serious: Yes (Life-Threatening)
  Sender: FDA-Public Use
  Company Number: 200610888GDS

PATIENT
  Age: 88 Year
  Sex: Male

DRUGS (2)
  1. ADIRO 100 (ACETYLSALICYLIC ACID). [Suspect]
     Dosage: 300 MG, TOTAL DAILY, ORAL
     Route: 048
     Dates: end: 20050612
  2. MELOXICAM [Suspect]
     Dosage: 15 MG, TOTAL DAILY, ORAL
     Route: 048
     Dates: end: 20050612

REACTIONS (2)
  - ANAEMIA [None]
  - GASTRIC ULCER HAEMORRHAGE [None]
